FAERS Safety Report 7519281-0 (Version None)
Quarter: 2011Q2

REPORT INFORMATION
  Report Type: 
  Country: None (occurrence: None)
  Receive Date: 20110602
  Receipt Date: 20110519
  Transmission Date: 20111010
  Serious: Yes (Other)
  Sender: FDA-Public Use
  Company Number: PHHY2011US34550

PATIENT
  Sex: Female

DRUGS (1)
  1. EXJADE [Suspect]
     Indication: BREAST CANCER
     Dosage: 1500 MG, QD
     Route: 048

REACTIONS (2)
  - BLOOD IRON ABNORMAL [None]
  - LIVER INJURY [None]
